FAERS Safety Report 6745823-9 (Version None)
Quarter: 2010Q2

REPORT INFORMATION
  Report Type: 
  Country: None (occurrence: None)
  Receive Date: 20100528
  Receipt Date: 20100525
  Transmission Date: 20101027
  Serious: Yes (Hospitalization)
  Sender: FDA-Public Use
  Company Number: DE-BRISTOL-MYERS SQUIBB COMPANY-15072382

PATIENT
  Age: 81 Year
  Sex: Male
  Weight: 68 kg

DRUGS (1)
  1. SPRYCEL [Suspect]
     Dosage: PREVIOUSLY TAKE 100MG 1YR AGO+DOSE DECREASED
     Route: 048
     Dates: start: 20100413, end: 20100420

REACTIONS (5)
  - CHEST PAIN [None]
  - DYSPNOEA [None]
  - FEELING ABNORMAL [None]
  - PLEURAL EFFUSION [None]
  - PYREXIA [None]
